FAERS Safety Report 9136498 (Version 1)
Quarter: 2013Q1

REPORT INFORMATION
  Report Type: Spontaneous
  Country: US (occurrence: US)
  Receive Date: 20130219
  Receipt Date: 20130219
  Transmission Date: 20140127
  Serious: No
  Sender: FDA-Public Use
  Company Number: US-BRISTOL-MYERS SQUIBB COMPANY-16842544

PATIENT
  Age: 46 Year
  Sex: Male
  Weight: 83.9 kg

DRUGS (8)
  1. ABATACEPT SUBQ INJECTION 125MG/ML [Suspect]
     Indication: RHEUMATOID ARTHRITIS
     Dosage: PRESCRIPTION #:394155.?LAST INJECTION: 04AUG2012
     Route: 058
  2. SAVELLA [Concomitant]
  3. LEXAPRO [Concomitant]
  4. LIPITOR [Concomitant]
  5. LISINOPRIL [Concomitant]
  6. VITAMIN D [Concomitant]
  7. CARISOPRODOL [Concomitant]
  8. CLONAZEPAM [Concomitant]

REACTIONS (1)
  - Contusion [Unknown]
